FAERS Safety Report 14350434 (Version 2)
Quarter: 2018Q1

REPORT INFORMATION
  Report Type: Spontaneous
  Country: US (occurrence: US)
  Receive Date: 20180104
  Receipt Date: 20180213
  Transmission Date: 20180509
  Serious: Yes (Hospitalization, Other)
  Sender: FDA-Public Use
  Company Number: US-PFIZER INC-2018003275

PATIENT
  Age: 43 Year
  Sex: Female
  Weight: 129.27 kg

DRUGS (10)
  1. METOPROLOL. [Concomitant]
     Active Substance: METOPROLOL
     Indication: HYPERTENSION
  2. METFORMIN [Concomitant]
     Active Substance: METFORMIN HYDROCHLORIDE
     Indication: DIABETES MELLITUS
  3. LYRICA [Suspect]
     Active Substance: PREGABALIN
     Dosage: ONE CAPSULE IN THE MORNING AND TWO AT BEDTIME
  4. LYRICA [Suspect]
     Active Substance: PREGABALIN
     Indication: FIBROMYALGIA
     Dosage: ONE CAPSULE AT BEDTIME
  5. MIRAPEX [Concomitant]
     Active Substance: PRAMIPEXOLE DIHYDROCHLORIDE
     Indication: RESTLESS LEGS SYNDROME
  6. LYRICA [Suspect]
     Active Substance: PREGABALIN
     Dosage: ONE CAPSULE TWICE DAILY
  7. LYRICA [Suspect]
     Active Substance: PREGABALIN
     Dosage: 75 MG, TWO CAPSULES TWICE DAILY
     Route: 048
     Dates: start: 20171204
  8. AMITRIPTYLINE [Concomitant]
     Active Substance: AMITRIPTYLINE
     Indication: MIGRAINE
  9. COLCHICINE. [Concomitant]
     Active Substance: COLCHICINE
     Indication: PERICARDITIS
  10. TRINTELLIX [Concomitant]
     Active Substance: VORTIOXETINE HYDROBROMIDE
     Indication: DEPRESSION

REACTIONS (4)
  - Cardiac failure congestive [Unknown]
  - Fluid retention [Unknown]
  - Pericarditis [Unknown]
  - Weight increased [Unknown]
